FAERS Safety Report 19168667 (Version 3)
Quarter: 2023Q4

REPORT INFORMATION
  Report Type: Report from Study
  Country: NL (occurrence: NL)
  Receive Date: 20210422
  Receipt Date: 20231229
  Transmission Date: 20240110
  Serious: Yes (Death, Life-Threatening, Other)
  Sender: FDA-Public Use
  Company Number: NL-GILEAD-2021-0516543

PATIENT
  Sex: Male
  Weight: 93 kg

DRUGS (41)
  1. CYCLOPHOSPHAMIDE [Suspect]
     Active Substance: CYCLOPHOSPHAMIDE
     Indication: Product used for unknown indication
     Dosage: 500 MG/M2, QD, CUMULATIVE DOSE: 1000 MG/M2
     Route: 042
     Dates: start: 20210106, end: 20210108
  2. DEXAMETHASONE [Suspect]
     Active Substance: DEXAMETHASONE
     Indication: Immune effector cell-associated neurotoxicity syndrome
     Dosage: 20 MG
     Route: 042
     Dates: start: 20201228, end: 20201229
  3. DEXAMETHASONE [Suspect]
     Active Substance: DEXAMETHASONE
     Dosage: 10 MG
     Route: 048
     Dates: start: 20201211
  4. DEXAMETHASONE [Suspect]
     Active Substance: DEXAMETHASONE
     Dosage: 10-40 MG, QD
     Route: 042
     Dates: start: 20210118
  5. DEXAMETHASONE [Suspect]
     Active Substance: DEXAMETHASONE
     Dosage: 40 MG
     Route: 048
     Dates: start: 20201226, end: 20201227
  6. DEXAMETHASONE [Suspect]
     Active Substance: DEXAMETHASONE
     Dosage: 10-40 MG QD, TAPERED DOWN 10 MG EVERY 2 DAYS
     Route: 042
     Dates: start: 20210122, end: 20210203
  7. BREXUCABTAGENE AUTOLEUCEL [Suspect]
     Active Substance: BREXUCABTAGENE AUTOLEUCEL
     Indication: Mantle cell lymphoma
     Dosage: 68 ML, ONCE, TOTAL
     Route: 042
     Dates: start: 20210111, end: 20210111
  8. FLUDARABINE [Suspect]
     Active Substance: FLUDARABINE PHOSPHATE
     Dosage: 30 MG/M2, QD, CUMULATIVE DOSE: 60 MG/M2
     Route: 042
     Dates: start: 20210106, end: 20210108
  9. CALCIUM GLUCONATE [Concomitant]
     Active Substance: CALCIUM GLUCONATE
     Dosage: UNK
     Route: 065
     Dates: start: 20201209, end: 20210117
  10. VENETOCLAX [Concomitant]
     Active Substance: VENETOCLAX
     Dosage: UNK
     Route: 065
     Dates: start: 20201229, end: 20210103
  11. DOTAREM [Concomitant]
     Active Substance: GADOTERATE MEGLUMINE
     Dosage: UNK
     Route: 065
     Dates: start: 20201218, end: 20210120
  12. METHYLPREDNISOLONE [Concomitant]
     Active Substance: METHYLPREDNISOLONE
     Indication: Immune effector cell-associated neurotoxicity syndrome
     Dosage: 2 G
     Route: 065
     Dates: start: 20210119, end: 20210121
  13. BACLOFEN [Concomitant]
     Active Substance: BACLOFEN
     Dosage: UNK
     Route: 065
     Dates: start: 20210107
  14. SODIUM CHLORIDE [Concomitant]
     Active Substance: SODIUM CHLORIDE
     Dosage: BOLUSES
     Route: 065
     Dates: start: 20210114
  15. SODIUM CHLORIDE [Concomitant]
     Active Substance: SODIUM CHLORIDE
     Dosage: 500 ML
     Route: 065
     Dates: start: 20210112
  16. LIDOCAINE [Concomitant]
     Active Substance: LIDOCAINE
     Dosage: UNK
     Route: 065
     Dates: start: 20201209, end: 20210127
  17. PIPERACILLIN SODIUM\TAZOBACTAM SODIUM [Concomitant]
     Active Substance: PIPERACILLIN SODIUM\TAZOBACTAM SODIUM
     Indication: Pneumonia aspiration
     Dosage: UNK
     Route: 065
     Dates: start: 20210118, end: 20210121
  18. NEULASTA [Concomitant]
     Active Substance: PEGFILGRASTIM
     Dosage: UNK
     Route: 065
     Dates: start: 20201212
  19. DEXTROSE\SODIUM CHLORIDE [Concomitant]
     Active Substance: DEXTROSE\SODIUM CHLORIDE
     Dosage: UNK
     Route: 065
     Dates: start: 20210125
  20. FOSCARNET [Concomitant]
     Active Substance: FOSCARNET
     Indication: Cytomegalovirus infection
     Dosage: UNK
     Route: 065
     Dates: start: 20210201
  21. FOSCARNET [Concomitant]
     Active Substance: FOSCARNET
     Dosage: UNK
     Route: 065
     Dates: start: 20210112
  22. Microlax [Concomitant]
     Dosage: UNK
     Route: 065
     Dates: start: 20210108
  23. MESNA [Concomitant]
     Active Substance: MESNA
     Dosage: 1130 MG, UNK
     Route: 042
     Dates: start: 20210106, end: 20210109
  24. METOCLOPRAMIDE [Concomitant]
     Active Substance: METOCLOPRAMIDE
     Dosage: UNK
     Route: 065
     Dates: start: 20201228
  25. TEMAZEPAM [Concomitant]
     Active Substance: TEMAZEPAM
     Dosage: UNK
     Route: 065
     Dates: start: 20210107
  26. FLUDEOXYGLUCOSE F-18 [Concomitant]
     Active Substance: FLUDEOXYGLUCOSE F-18
     Dosage: UNK
     Route: 065
     Dates: start: 20201228, end: 20210104
  27. CEFTAZIDIME [Concomitant]
     Active Substance: CEFTAZIDIME
     Indication: Pyrexia
     Dosage: UNK
     Route: 065
     Dates: start: 20210112, end: 20210118
  28. GANCICLOVIR [Concomitant]
     Active Substance: GANCICLOVIR
     Indication: Cytomegalovirus infection
     Dosage: UNK
     Route: 065
     Dates: start: 20210201
  29. COTRIMOXAZOLE [Concomitant]
     Active Substance: SULFAMETHOXAZOLE\TRIMETHOPRIM
     Indication: Prophylaxis
     Dosage: UNK
     Route: 065
     Dates: start: 20210112, end: 20210119
  30. FUROSEMIDE [Concomitant]
     Active Substance: FUROSEMIDE
     Dosage: UNK
     Route: 065
     Dates: start: 20201228, end: 20210117
  31. MAGNESIUM SULFATE [Concomitant]
     Active Substance: MAGNESIUM SULFATE\MAGNESIUM SULFATE HEPTAHYDRATE
     Dosage: UNK
     Route: 065
     Dates: start: 20210111
  32. CLEMASTINE [Concomitant]
     Active Substance: CLEMASTINE
     Dosage: UNK
     Route: 042
     Dates: start: 20201210, end: 20210111
  33. LEVETIRACETAM [Concomitant]
     Active Substance: LEVETIRACETAM
     Indication: Prophylaxis
     Dosage: 750 MG, BID
     Route: 048
     Dates: start: 20210111
  34. LEVETIRACETAM [Concomitant]
     Active Substance: LEVETIRACETAM
     Dosage: 1000 MG, BID
     Route: 042
     Dates: start: 20210121, end: 20210122
  35. PREDNISOLONNATRIUMSUCCINAAT CF [Concomitant]
     Dosage: UNK
     Route: 065
     Dates: start: 20201210, end: 20201210
  36. AMIODARONE [Concomitant]
     Active Substance: AMIODARONE
     Dosage: UNK
     Route: 065
     Dates: start: 20210121
  37. TOCILIZUMAB [Concomitant]
     Active Substance: TOCILIZUMAB
     Indication: Cytokine release syndrome
     Dosage: 791.2 MG 2X
     Route: 065
     Dates: start: 20210117, end: 20210117
  38. TOCILIZUMAB [Concomitant]
     Active Substance: TOCILIZUMAB
     Dosage: 791.2 MG, ONCE, TOTAL
     Route: 065
     Dates: start: 20210114, end: 20210114
  39. ACETAMINOPHEN [Concomitant]
     Active Substance: ACETAMINOPHEN
     Dosage: UNK
     Route: 065
     Dates: start: 20201210, end: 20210112
  40. ROCURONIUM BROMIDE [Concomitant]
     Active Substance: ROCURONIUM BROMIDE
     Dosage: UNK
     Route: 065
     Dates: start: 20201228, end: 20201228
  41. ROCURONIUM BROMIDE [Concomitant]
     Active Substance: ROCURONIUM BROMIDE
     Dosage: UNK
     Route: 065
     Dates: start: 20201218, end: 20201218

REACTIONS (6)
  - Neutropenia [Fatal]
  - Cytokine release syndrome [Recovered/Resolved]
  - Immune effector cell-associated neurotoxicity syndrome [Recovered/Resolved]
  - Fungal sepsis [Fatal]
  - Pneumonia aspiration [Unknown]
  - Hypotension [Recovered/Resolved]

NARRATIVE: CASE EVENT DATE: 20210112
